FAERS Safety Report 4751662-0 (Version None)
Quarter: 2005Q3

REPORT INFORMATION
  Report Type: 
  Country: None (occurrence: None)
  Receive Date: 20050822
  Receipt Date: 20050812
  Transmission Date: 20060218
  Serious: Yes (Other)
  Sender: FDA-Public Use
  Company Number: 2005-08-0296

PATIENT
  Age: 55 Year
  Sex: Female

DRUGS (7)
  1. TEMODAL [Suspect]
     Indication: EPENDYMOMA
     Dosage: 100-200MG QOD ORAL
     Route: 048
     Dates: start: 20050614, end: 20050804
  2. RADIATION THERAPY [Concomitant]
  3. DEXAMETHASONE [Concomitant]
  4. PROCHLORPERAZINE [Concomitant]
  5. RANITIDINE HCL [Concomitant]
  6. VERAPAMIL [Concomitant]
  7. FUROSEMIDE [Concomitant]

REACTIONS (6)
  - CHOLECYSTITIS [None]
  - HEPATIC STEATOSIS [None]
  - JAUNDICE [None]
  - LIVER FUNCTION TEST ABNORMAL [None]
  - PANCREATIC DISORDER [None]
  - RASH PAPULAR [None]
